FAERS Safety Report 24906438 (Version 1)
Quarter: 2025Q1

REPORT INFORMATION
  Report Type: Spontaneous
  Country: GB (occurrence: GB)
  Receive Date: 20250130
  Receipt Date: 20250130
  Transmission Date: 20250409
  Serious: Yes (Other)
  Sender: PFIZER
  Company Number: GB-MHRA-EMIS-2558-70401b40-e00a-440f-b689-4f4b79e88e81

PATIENT
  Age: 49 Year
  Sex: Female
  Weight: 62 kg

DRUGS (3)
  1. DEPO-PROVERA [Suspect]
     Active Substance: MEDROXYPROGESTERONE ACETATE
     Indication: Contraception
     Dates: start: 20091201, end: 20240901
  2. INFLUENZA VIRUS VACCINE [Concomitant]
     Active Substance: INFLUENZA VIRUS VACCINE
     Dates: start: 20241003, end: 20241003
  3. COMIRNATY [Concomitant]
     Route: 030
     Dates: start: 20241017

REACTIONS (1)
  - Meningioma malignant [Unknown]

NARRATIVE: CASE EVENT DATE: 20091201
